FAERS Safety Report 20315738 (Version 4)
Quarter: 2022Q1

REPORT INFORMATION
  Report Type: Spontaneous
  Country: KH (occurrence: KH)
  Receive Date: 20220110
  Receipt Date: 20220223
  Transmission Date: 20220423
  Serious: Yes (Death)
  Sender: FDA-Public Use
  Company Number: KH-NOVARTISPH-NVSC2022KH003214

PATIENT
  Age: 63 Year
  Sex: Female

DRUGS (3)
  1. GLIVEC [Suspect]
     Active Substance: IMATINIB MESYLATE
     Indication: Gastrointestinal stromal tumour
     Dosage: 600 MG, QD (300 MG BID)
     Route: 048
     Dates: start: 20170605
  2. FUROSEMIDE [Concomitant]
     Active Substance: FUROSEMIDE
     Indication: Hypertension
     Dosage: 40 MG
     Route: 048
     Dates: start: 20210105
  3. SPIRONOLACTONE [Concomitant]
     Active Substance: SPIRONOLACTONE
     Indication: Hypertension
     Dosage: 25 MG
     Route: 048
     Dates: start: 20210202

REACTIONS (3)
  - Anaemia [Fatal]
  - Dyspnoea [Fatal]
  - Fatigue [Fatal]

NARRATIVE: CASE EVENT DATE: 20210701
